FAERS Safety Report 25133280 (Version 1)
Quarter: 2025Q1

REPORT INFORMATION
  Report Type: Spontaneous
  Country: FR (occurrence: FR)
  Receive Date: 20250328
  Receipt Date: 20250328
  Transmission Date: 20250408
  Serious: Yes (Hospitalization, Congenital Anomaly, Other)
  Sender: AUROBINDO
  Company Number: FR-AFSSAPS-BX2025000374

PATIENT
  Age: 1 Day
  Sex: Male
  Weight: 3.185 kg

DRUGS (1)
  1. ISOTRETINOIN [Suspect]
     Active Substance: ISOTRETINOIN
     Indication: Acne
     Route: 064
     Dates: start: 20230718, end: 202308

REACTIONS (5)
  - Transposition of the great vessels [Recovering/Resolving]
  - Ventricular septal defect [Recovering/Resolving]
  - Dysmorphism [Recovering/Resolving]
  - Atrial septal defect [Recovering/Resolving]
  - Maternal exposure during pregnancy [Recovered/Resolved]

NARRATIVE: CASE EVENT DATE: 20230704
